FAERS Safety Report 25979824 (Version 1)
Quarter: 2025Q4

REPORT INFORMATION
  Report Type: Spontaneous
  Country: US (occurrence: US)
  Receive Date: 20251030
  Receipt Date: 20251030
  Transmission Date: 20260118
  Serious: No
  Sender: PFIZER
  Company Number: US-PFIZER INC-PV202500127717

PATIENT
  Age: 14 Year
  Sex: Male

DRUGS (1)
  1. EUCRISA [Suspect]
     Active Substance: CRISABOROLE
     Indication: Dermatitis atopic
     Dosage: ONCE DAILY
     Dates: start: 2022, end: 2025

REACTIONS (2)
  - Drug ineffective [Unknown]
  - Condition aggravated [Unknown]
